FAERS Safety Report 8778162 (Version 3)
Quarter: 2012Q4

REPORT INFORMATION
  Report Type: Report from Study
  Country: US (occurrence: US)
  Receive Date: 20120912
  Receipt Date: 20121004
  Transmission Date: 20130627
  Serious: Yes (Hospitalization)
  Sender: FDA-Public Use
  Company Number: US-ABBOTT-12P-163-0976454-00

PATIENT
  Sex: Female
  Weight: 20.43 kg

DRUGS (1)
  1. HUMIRA [Suspect]
     Indication: COLITIS ULCERATIVE
     Dates: start: 20120726

REACTIONS (3)
  - Pancreatitis [Recovered/Resolved]
  - Off label use [Unknown]
  - Rash [Recovered/Resolved]
